FAERS Safety Report 8984736 (Version 2)
Quarter: 2013Q3

REPORT INFORMATION
  Report Type: Spontaneous
  Country: US (occurrence: None)
  Receive Date: 20121217
  Receipt Date: 20130930
  Transmission Date: 20140515
  Serious: Yes (Other)
  Sender: FDA-Public Use
  Company Number: 2012P1066609

PATIENT
  Age: 62 Year
  Sex: Female

DRUGS (13)
  1. INFUMORPH [Suspect]
     Indication: POST LAMINECTOMY SYNDROME
  2. INFUMORPH [Suspect]
     Indication: SPINAL PAIN
  3. ZOCOR [Concomitant]
  4. LASIX [Concomitant]
  5. ZOLOFT [Concomitant]
  6. SYNTHROID [Concomitant]
  7. CELEBREX [Concomitant]
  8. ATENOLOL [Concomitant]
  9. LIDODERM PATCH [Concomitant]
  10. STOOL SOFTENER [Concomitant]
  11. PERCOCET [Concomitant]
  12. MULTIVITAMIN [Concomitant]
  13. PREDNISONE [Suspect]

REACTIONS (8)
  - Device kink [None]
  - Device dislocation [None]
  - Withdrawal syndrome [None]
  - Feeling abnormal [None]
  - Pain in extremity [None]
  - Condition aggravated [None]
  - Convulsion [None]
  - Tremor [None]
